FAERS Safety Report 13834540 (Version 11)
Quarter: 2018Q4

REPORT INFORMATION
  Report Type: Report from Study
  Country: GB (occurrence: GB)
  Receive Date: 20170804
  Receipt Date: 20181207
  Transmission Date: 20190204
  Serious: Yes (Death, Hospitalization, Other)
  Sender: FDA-Public Use
  Company Number: GB-ROCHE-1906826

PATIENT
  Age: 76 Year
  Sex: Male

DRUGS (7)
  1. ESBRIET [Suspect]
     Active Substance: PIRFENIDONE
     Route: 048
  2. ESBRIET [Suspect]
     Active Substance: PIRFENIDONE
     Indication: IDIOPATHIC PULMONARY FIBROSIS
     Route: 048
     Dates: start: 20170221
  3. ESBRIET [Suspect]
     Active Substance: PIRFENIDONE
     Route: 048
  4. OXYGEN. [Concomitant]
     Active Substance: OXYGEN
     Dosage: 2L/MIN
     Route: 065
  5. ORAMORPH [Concomitant]
     Active Substance: MORPHINE SULFATE
     Dosage: 1.5 MG IN AM AND AGAIN DURING DAY WITH PANTING
     Route: 065
  6. ESBRIET [Suspect]
     Active Substance: PIRFENIDONE
     Route: 048
     Dates: start: 201706
  7. ESBRIET [Suspect]
     Active Substance: PIRFENIDONE
     Dosage: 2-1-2
     Route: 048

REACTIONS (43)
  - Sinus disorder [Unknown]
  - Arthralgia [Unknown]
  - Headache [Recovering/Resolving]
  - Dysphonia [Unknown]
  - Pneumonia [Fatal]
  - Oxygen saturation decreased [Fatal]
  - Nasopharyngitis [Unknown]
  - Decreased appetite [Recovering/Resolving]
  - Dizziness [Unknown]
  - Oropharyngeal pain [Unknown]
  - Gastrooesophageal reflux disease [Unknown]
  - Back pain [Recovered/Resolved]
  - Cough [Recovered/Resolved]
  - Bowel movement irregularity [Unknown]
  - Flatulence [Unknown]
  - Eating disorder [Unknown]
  - Muscle spasms [Unknown]
  - Productive cough [Unknown]
  - Chest discomfort [Unknown]
  - Pain [Unknown]
  - Chest pain [Unknown]
  - Diaphragmatic spasm [Unknown]
  - Pulmonary oedema [Unknown]
  - Feeling abnormal [Unknown]
  - Breast pain [Unknown]
  - Constipation [Not Recovered/Not Resolved]
  - Pollakiuria [Unknown]
  - Weight decreased [Unknown]
  - Diarrhoea [Not Recovered/Not Resolved]
  - Flatulence [Not Recovered/Not Resolved]
  - Pain [Recovered/Resolved]
  - Weight increased [Unknown]
  - Gait disturbance [Unknown]
  - Dyspnoea [Unknown]
  - Dyspnoea exertional [Unknown]
  - Lower respiratory tract infection [Unknown]
  - Ill-defined disorder [Not Recovered/Not Resolved]
  - Musculoskeletal chest pain [Not Recovered/Not Resolved]
  - Diabetes mellitus [Unknown]
  - Cough [Unknown]
  - Polyuria [Unknown]
  - Abdominal pain [Recovered/Resolved]
  - Abdominal distension [Unknown]

NARRATIVE: CASE EVENT DATE: 20170802
